FAERS Safety Report 7277165-X (Version None)
Quarter: 2011Q1

REPORT INFORMATION
  Report Type: 
  Country: None (occurrence: None)
  Receive Date: 20110207
  Receipt Date: 20110127
  Transmission Date: 20110831
  Serious: Yes (Hospitalization, Congenital Anomaly)
  Sender: FDA-Public Use
  Company Number: DE-TEVA-264841GER

PATIENT
  Age: 0 Year
  Sex: Male
  Weight: 3.71 kg

DRUGS (1)
  1. PAROXETINE HCL [Suspect]
     Indication: DEPRESSION
     Route: 064

REACTIONS (3)
  - TALIPES [None]
  - NEONATAL RESPIRATORY DISTRESS SYNDROME [None]
  - AGITATION NEONATAL [None]
